FAERS Safety Report 5275684-9 (Version None)
Quarter: 2007Q1

REPORT INFORMATION
  Report Type: 
  Country: None (occurrence: None)
  Receive Date: 20061213
  Receipt Date: 20040408
  Transmission Date: 20070707
  Serious: Yes (Hospitalization)
  Sender: FDA-Public Use
  Company Number: 2004UW07175

PATIENT
  Age: 15 Year
  Sex: Female

DRUGS (2)
  1. SEROQUEL [Suspect]
     Dosage: 90 DAY SUPPLY OF 100 MG TABLETS PO
     Route: 048
  2. LAMICTAL [Concomitant]

REACTIONS (4)
  - COMA [None]
  - CONVULSION [None]
  - OVERDOSE [None]
  - SOMNOLENCE [None]
